FAERS Safety Report 8640669 (Version 2)
Quarter: 2012Q4

REPORT INFORMATION
  Report Type: 
  Country: US (occurrence: US)
  Receive Date: 20120628
  Receipt Date: 20121026
  Transmission Date: 20130627
  Serious: Yes (Hospitalization)
  Sender: FDA-Public Use
  Company Number: US-BAYER-2012-062394

PATIENT
  Age: 37 Year
  Sex: Female
  Weight: 83.9 kg

DRUGS (2)
  1. YASMIN [Suspect]
     Dosage: UNK
     Dates: start: 2004, end: 2009
  2. OCELLA [Suspect]
     Dosage: UNK
     Dates: start: 2004, end: 2009

REACTIONS (8)
  - Deep vein thrombosis [None]
  - Pulmonary embolism [None]
  - Emotional distress [None]
  - Pain [None]
  - Injury [None]
  - Dyspnoea [None]
  - Fatigue [None]
  - Fear of disease [None]
